FAERS Safety Report 12938726 (Version 1)
Quarter: 2016Q4

REPORT INFORMATION
  Report Type: Report from Study
  Country: US (occurrence: US)
  Receive Date: 20161115
  Receipt Date: 20161115
  Transmission Date: 20170207
  Serious: Yes (Other)
  Sender: FDA-Public Use
  Company Number: US-BRISTOL-MYERS SQUIBB COMPANY-BMS-2015-094150

PATIENT
  Sex: Female

DRUGS (1)
  1. DASATINIB [Suspect]
     Active Substance: DASATINIB
     Indication: CHRONIC MYELOID LEUKAEMIA
     Dosage: 100 MG, QD
     Route: 048
     Dates: start: 20151204

REACTIONS (14)
  - Pulmonary arterial hypertension [Unknown]
  - Diarrhoea [Unknown]
  - Painful respiration [Recovered/Resolved]
  - Headache [Unknown]
  - Dyspnoea [Unknown]
  - Endometrial ablation [Unknown]
  - Cardiac murmur [Unknown]
  - Fatigue [Not Recovered/Not Resolved]
  - Abdominal discomfort [Recovered/Resolved]
  - Mineral supplementation [Unknown]
  - Menometrorrhagia [Not Recovered/Not Resolved]
  - Red blood cell count decreased [Unknown]
  - Pleurisy [Unknown]
  - Heart valve incompetence [Unknown]
